FAERS Safety Report 10956803 (Version 1)
Quarter: 2015Q1

REPORT INFORMATION
  Report Type: Spontaneous
  Country: US (occurrence: US)
  Receive Date: 20150326
  Receipt Date: 20150326
  Transmission Date: 20150721
  Serious: No
  Sender: FDA-Public Use
  Company Number: US-MYLANLABS-2014M1014450

PATIENT
  Age: 24 Year
  Sex: Male
  Weight: 61.22 kg

DRUGS (6)
  1. EMSAM [Suspect]
     Active Substance: SELEGILINE
     Indication: DEPRESSION
     Dosage: 9 MG, QD, CHANGE DAILY
     Route: 062
     Dates: start: 201411, end: 20141124
  2. BACTRIM [Concomitant]
     Active Substance: SULFAMETHOXAZOLE\TRIMETHOPRIM
     Indication: ACNE
     Dosage: UNK, BID
  3. EMSAM [Suspect]
     Active Substance: SELEGILINE
     Indication: DEPRESSION
     Dosage: 6 MG, QD, CHANGE DAILY
     Route: 062
     Dates: start: 20141027, end: 201411
  4. EMSAM [Suspect]
     Active Substance: SELEGILINE
     Indication: ANXIETY
  5. EMSAM [Suspect]
     Active Substance: SELEGILINE
     Indication: ANXIETY
     Dosage: 12 MG, QD, CHANGE DAILY
     Route: 062
     Dates: start: 201411, end: 201411
  6. CLONAZEPAM. [Concomitant]
     Active Substance: CLONAZEPAM
     Dosage: UNK

REACTIONS (3)
  - Drug effect decreased [Not Recovered/Not Resolved]
  - Acne [Recovered/Resolved]
  - Scar [Not Recovered/Not Resolved]

NARRATIVE: CASE EVENT DATE: 2014
